FAERS Safety Report 10502733 (Version 3)
Quarter: 2014Q4

REPORT INFORMATION
  Report Type: Spontaneous
  Country: BR (occurrence: BR)
  Receive Date: 20141007
  Receipt Date: 20141117
  Transmission Date: 20150528
  Serious: Yes (Death, Hospitalization, Other)
  Sender: FDA-Public Use
  Company Number: BR-SA-2014SA013832

PATIENT
  Age: 26 Year
  Sex: Female

DRUGS (2)
  1. LANTUS [Suspect]
     Active Substance: INSULIN GLARGINE
     Indication: DIABETES MELLITUS MANAGEMENT
     Dosage: DOSE:19 UNIT(S)
     Route: 065
     Dates: start: 201402
  2. INSULIN [Concomitant]
     Active Substance: INSULIN NOS

REACTIONS (5)
  - Exposure during pregnancy [Unknown]
  - Coma [Recovered/Resolved]
  - Premature delivery [Unknown]
  - Infection [Fatal]
  - Uterine dilation and curettage [Unknown]

NARRATIVE: CASE EVENT DATE: 201404
